FAERS Safety Report 9540254 (Version 1)
Quarter: 2013Q2

REPORT INFORMATION
  Report Type: Spontaneous
  Country: US (occurrence: None)
  Receive Date: 20130528
  Receipt Date: 20130528
  Transmission Date: 20140414
  Serious: Yes (Disabling)
  Sender: FDA-Public Use
  Company Number: US-HORIZON-PRE-0042-2013

PATIENT
  Age: 80 Year
  Sex: Female

DRUGS (1)
  1. RAYOS [Suspect]
     Indication: PRODUCT USED FOR UNKNOWN INDICATION
     Dosage: 6 MG ONCE A DAY
     Dates: start: 20130307

REACTIONS (3)
  - Humerus fracture [None]
  - Fractured coccyx [None]
  - Fall [None]
